FAERS Safety Report 9416921 (Version 2)
Quarter: 2013Q3

REPORT INFORMATION
  Report Type: Spontaneous
  Country: US (occurrence: None)
  Receive Date: 20130722
  Receipt Date: 20130816
  Transmission Date: 20140515
  Serious: Yes (Other)
  Sender: FDA-Public Use
  Company Number: AMAG201300106

PATIENT
  Age: 89 Year
  Sex: Male
  Weight: 77.1 kg

DRUGS (12)
  1. FERAHEME [Suspect]
     Indication: IRON DEFICIENCY ANAEMIA
     Dosage: 510 MG, SINGLE, IV PUSH
     Route: 042
     Dates: start: 20130425, end: 20130425
  2. ARANESP (DARBEPOETIN ALFA) [Concomitant]
  3. ASCORBIC ACID (ASCORBIC ACID) [Concomitant]
  4. CHOLECALCIFEROL (CHOLECALCIFEROL) [Concomitant]
  5. FERROUS SULFATE (FERROUS SULFATE) [Concomitant]
  6. ADVAIR DISKUS (FLUTICASONE PROPIONATE, SALMETEROL XINAFOATE) [Concomitant]
  7. FUROSEMIDE (FUROSEMIDE) [Concomitant]
  8. IPRATROPIUM BROMIDE (IPRATROPIUM BROMIDE) [Concomitant]
  9. LEVOTHYROXINE SODIUM (LEVOTHYROXINE SODIUM) [Concomitant]
  10. PRAZOSIN HYDROCHLORIDE (PRAZOSIN HYDROCHLORIDE) [Concomitant]
  11. PREDNISONE (PREDNISONE ACETATE) [Concomitant]
  12. SPIRIVA (TIOTROPIUM BROMIDE) [Concomitant]

REACTIONS (6)
  - Cardiac arrest [None]
  - Syncope [None]
  - Hypotension [None]
  - Erythema [None]
  - Dyspnoea [None]
  - Oxygen saturation decreased [None]
